FAERS Safety Report 25468244 (Version 1)
Quarter: 2025Q2

REPORT INFORMATION
  Report Type: Spontaneous
  Country: GB (occurrence: GB)
  Receive Date: 20250623
  Receipt Date: 20250623
  Transmission Date: 20250717
  Serious: Yes (Other)
  Sender: TORRENT PHARMA INC.
  Company Number: None

PATIENT
  Age: 71 Year
  Sex: Female
  Weight: 76 kg

DRUGS (2)
  1. ROSUVASTATIN [Suspect]
     Active Substance: ROSUVASTATIN
     Indication: Coronary artery disease
     Route: 065
     Dates: start: 20250417, end: 20250512
  2. PROGESTERONE [Concomitant]
     Active Substance: PROGESTERONE
     Indication: Hormone replacement therapy
     Route: 065

REACTIONS (6)
  - Muscle spasms [Recovered/Resolved with Sequelae]
  - Myalgia [Unknown]
  - Insomnia [Unknown]
  - Discomfort [Unknown]
  - Pain [Unknown]
  - Renal pain [Unknown]

NARRATIVE: CASE EVENT DATE: 20250510
